FAERS Safety Report 8601851-X (Version None)
Quarter: 2012Q3

REPORT INFORMATION
  Report Type: 
  Country: None (occurrence: None)
  Receive Date: 20120817
  Receipt Date: 20120502
  Transmission Date: 20120928
  Serious: Yes (Other)
  Sender: FDA-Public Use
  Company Number: US-BRISTOL-MYERS SQUIBB COMPANY-16567844

PATIENT
  Age: 26 Year
  Sex: Male
  Weight: 82 kg

DRUGS (2)
  1. SPRYCEL [Suspect]
     Indication: CHRONIC MYELOID LEUKAEMIA
  2. ALLOPURINOL [Suspect]

REACTIONS (11)
  - RASH MACULO-PAPULAR [None]
  - CHEST DISCOMFORT [None]
  - TRANSAMINASES INCREASED [None]
  - BLOOD CREATININE INCREASED [None]
  - INFLUENZA [None]
  - MYALGIA [None]
  - BACK PAIN [None]
  - TESTICULAR PAIN [None]
  - HEADACHE [None]
  - PYREXIA [None]
  - WHEEZING [None]
